FAERS Safety Report 8500013-4 (Version None)
Quarter: 2012Q3

REPORT INFORMATION
  Report Type: 
  Country: None (occurrence: None)
  Receive Date: 20120710
  Receipt Date: 20120626
  Transmission Date: 20120928
  Serious: Yes (Hospitalization)
  Sender: FDA-Public Use
  Company Number: US-UCBSA-006115

PATIENT
  Age: 15 Year
  Sex: Male
  Weight: 47.7 kg

DRUGS (6)
  1. TYLENOL W/ CODEINE NO. 3 [Concomitant]
     Indication: PAIN
     Dosage: PRN
     Route: 048
     Dates: start: 20091228
  2. COSOPT [Concomitant]
     Indication: DEVELOPMENTAL GLAUCOMA
     Route: 047
     Dates: start: 20060814
  3. CDP870 [Suspect]
     Indication: CROHN'S DISEASE
     Route: 058
     Dates: start: 20090818, end: 20100519
  4. MULTI-VITAMINS [Concomitant]
     Indication: VITAMIN SUPPLEMENTATION
     Route: 048
     Dates: start: 20090818
  5. PREVACID [Concomitant]
     Indication: GASTROOESOPHAGEAL REFLUX DISEASE
     Route: 048
     Dates: start: 20060810
  6. ACETAMINOPHEN [Concomitant]
     Indication: PYREXIA
     Dosage: 500 MG AS NEEDED
     Route: 048
     Dates: start: 20091106

REACTIONS (2)
  - ANAL FISTULA [None]
  - PERINEAL ABSCESS [None]
